FAERS Safety Report 6440022-2 (Version None)
Quarter: 2009Q4

REPORT INFORMATION
  Report Type: 
  Country: None (occurrence: None)
  Receive Date: 20091112
  Receipt Date: 20091112
  Transmission Date: 20100525
  Serious: Yes (Hospitalization)
  Sender: FDA-Public Use
  Company Number: None

PATIENT
  Sex: Female
  Weight: 720 kg

DRUGS (1)
  1. BORTEZOMIB MILLENNIUM [Suspect]
     Dosage: 2.4 MG 15 DOSES IV
     Route: 042

REACTIONS (7)
  - CHILLS [None]
  - DIARRHOEA [None]
  - FOOD INTOLERANCE [None]
  - INFECTION [None]
  - NAUSEA [None]
  - PYREXIA [None]
  - TREMOR [None]
